FAERS Safety Report 18039709 (Version 1)
Quarter: 2020Q3

REPORT INFORMATION
  Report Type: Spontaneous
  Country: FR (occurrence: FR)
  Receive Date: 20200718
  Receipt Date: 20200718
  Transmission Date: 20201103
  Serious: Yes (Death)
  Sender: FDA-Public Use
  Company Number: FR-ACCORD-190079

PATIENT
  Age: 76 Year
  Sex: Male
  Weight: 77 kg

DRUGS (11)
  1. ONDANSETRON [Suspect]
     Active Substance: ONDANSETRON
     Indication: CHEMOTHERAPY SIDE EFFECT PROPHYLAXIS
     Route: 048
     Dates: start: 20200211, end: 20200211
  2. LEVOTHYROXINE. [Concomitant]
     Active Substance: LEVOTHYROXINE
     Indication: HYPOTHYROIDISM
     Route: 048
  3. METHYLPREDNISOLONE. [Suspect]
     Active Substance: METHYLPREDNISOLONE
     Indication: OESOPHAGEAL CARCINOMA
     Route: 042
     Dates: start: 20200211, end: 20200211
  4. PANTOPRAZOLE [Concomitant]
     Active Substance: PANTOPRAZOLE
     Indication: GASTROOESOPHAGEAL REFLUX DISEASE
     Route: 048
  5. ASPEGIC [Concomitant]
     Indication: MYOCARDIAL INFARCTION
     Dosage: STRENGTH:75 MG
     Route: 048
  6. RAMIPRIL. [Concomitant]
     Active Substance: RAMIPRIL
     Indication: MYOCARDIAL INFARCTION
     Route: 048
  7. FLUOROURACIL. [Suspect]
     Active Substance: FLUOROURACIL
     Indication: OESOPHAGEAL CARCINOMA
     Dosage: THEN IN 2400MG / M2 DIFFUSER
     Route: 042
     Dates: start: 20200211, end: 20200211
  8. OXALIPLATIN. [Suspect]
     Active Substance: OXALIPLATIN
     Indication: OESOPHAGEAL CARCINOMA
     Route: 042
     Dates: start: 20200211, end: 20200211
  9. LEVOFOLINATE [Suspect]
     Active Substance: LEVOLEUCOVORIN CALCIUM
     Indication: OESOPHAGEAL CARCINOMA
     Route: 042
     Dates: start: 20200211, end: 20200211
  10. APREPITANT. [Suspect]
     Active Substance: APREPITANT
     Indication: CHEMOTHERAPY SIDE EFFECT PROPHYLAXIS
     Route: 048
     Dates: start: 20200211, end: 20200213
  11. BISOPROLOL [Concomitant]
     Active Substance: BISOPROLOL
     Indication: MYOCARDIAL INFARCTION
     Route: 048

REACTIONS (2)
  - Intestinal ischaemia [Fatal]
  - Off label use [Unknown]

NARRATIVE: CASE EVENT DATE: 20200215
